FAERS Safety Report 16065155 (Version 2)
Quarter: 2019Q2

REPORT INFORMATION
  Report Type: Report from Study
  Country: None (occurrence: US)
  Receive Date: 20190313
  Receipt Date: 20190418
  Transmission Date: 20190711
  Serious: Yes (Other)
  Sender: FDA-Public Use
  Company Number: US-ABBVIE-19K-163-2697222-00

PATIENT
  Sex: Male
  Weight: 110.32 kg

DRUGS (1)
  1. HUMIRA [Suspect]
     Active Substance: ADALIMUMAB
     Indication: COLITIS ULCERATIVE
     Route: 058
     Dates: start: 201811

REACTIONS (3)
  - Haematochezia [Unknown]
  - Abdominal pain upper [Recovering/Resolving]
  - Gastric haemorrhage [Unknown]
